FAERS Safety Report 6077069-4 (Version None)
Quarter: 2009Q1

REPORT INFORMATION
  Report Type: 
  Country: None (occurrence: None)
  Receive Date: 20090211
  Receipt Date: 20090211
  Transmission Date: 20090719
  Serious: Yes (Other)
  Sender: FDA-Public Use
  Company Number: None

PATIENT
  Sex: Female
  Weight: 71.82 kg

DRUGS (6)
  1. VARENICLINE STARTING MONTH PAK [Suspect]
     Dosage: 0.5 (11) - 1 TAB DS PK 1 TREATMENT AS DIRECTED ORAL
     Route: 048
     Dates: start: 20081007, end: 20090210
  2. GLUCOPHAGE [Concomitant]
  3. SIMVASTATIN [Concomitant]
  4. ZANTAC (RANITIDINE HCL) [Concomitant]
  5. ZESTRIL [Concomitant]
  6. ZOLOFT [Concomitant]

REACTIONS (1)
  - VOMITING [None]
